FAERS Safety Report 6784210-4 (Version None)
Quarter: 2010Q2

REPORT INFORMATION
  Report Type: 
  Country: None (occurrence: None)
  Receive Date: 20100622
  Receipt Date: 20100608
  Transmission Date: 20101027
  Serious: Yes (Other)
  Sender: FDA-Public Use
  Company Number: US-ELI_LILLY_AND_COMPANY-US201006002856

PATIENT
  Sex: Male

DRUGS (4)
  1. CYMBALTA [Suspect]
     Indication: DEPRESSION
     Dosage: 30 MG, DAILY (1/D)
     Dates: start: 20100524, end: 20100530
  2. OXYCONTIN [Concomitant]
     Indication: BACK PAIN
     Dosage: 10 MG, 2/D
  3. AMBIEN [Concomitant]
     Indication: INSOMNIA
     Dosage: 12.5 MG, UNK
  4. METFORMIN [Concomitant]
     Indication: DIABETES MELLITUS
     Dosage: 500 MG, 2/D

REACTIONS (2)
  - DIABETIC COMA [None]
  - SOMNOLENCE [None]
